FAERS Safety Report 6926782-2 (Version None)
Quarter: 2010Q3

REPORT INFORMATION
  Report Type: 
  Country: None (occurrence: None)
  Receive Date: 20100816
  Receipt Date: 20100603
  Transmission Date: 20110219
  Serious: No
  Sender: FDA-Public Use
  Company Number: US-ABBOTT-10P-163-0649548-00

PATIENT
  Sex: Female

DRUGS (1)
  1. SIMCOR [Suspect]
     Indication: PRODUCT USED FOR UNKNOWN INDICATION
     Dates: start: 20100501

REACTIONS (5)
  - ERYTHEMA [None]
  - FLUSHING [None]
  - NERVOUSNESS [None]
  - PRURITUS [None]
  - RASH GENERALISED [None]
